FAERS Safety Report 7713658-6 (Version None)
Quarter: 2011Q3

REPORT INFORMATION
  Report Type: 
  Country: None (occurrence: None)
  Receive Date: 20110826
  Receipt Date: 20110823
  Transmission Date: 20111222
  Serious: Yes (Hospitalization, Other)
  Sender: FDA-Public Use
  Company Number: SE-PFIZER INC-2011197264

PATIENT
  Age: 84 Year
  Sex: Female

DRUGS (10)
  1. FELODIPINE [Concomitant]
  2. ACETAMINOPHEN [Concomitant]
  3. FUROSEMIDE [Concomitant]
  4. METOPROLOL TARTRATE [Suspect]
     Indication: ESSENTIAL HYPERTENSION
     Dosage: UNK
     Route: 048
     Dates: end: 20110707
  5. FLUTICASONE PROPIONATE [Concomitant]
  6. AMITRIPTYLINE HCL [Concomitant]
  7. RAMIPRIL [Suspect]
     Indication: ESSENTIAL HYPERTENSION
     Dosage: UNK
     Route: 048
     Dates: end: 20110707
  8. SPIRIVA [Concomitant]
  9. TIPAROL [Concomitant]
  10. CLINDAMYCIN HCL [Concomitant]

REACTIONS (2)
  - BRADYCARDIA [None]
  - BLOOD CREATININE INCREASED [None]
